FAERS Safety Report 22278184 (Version 1)
Quarter: 2023Q2

REPORT INFORMATION
  Report Type: Report from Study
  Country: US (occurrence: US)
  Receive Date: 20230503
  Receipt Date: 20230503
  Transmission Date: 20230722
  Serious: Yes (Hospitalization, Other)
  Sender: FDA-Public Use
  Company Number: US-EXELIXIS-CABO-23061455

PATIENT
  Sex: Female

DRUGS (2)
  1. CABOMETYX [Suspect]
     Active Substance: CABOZANTINIB S-MALATE
     Indication: Renal cancer
     Dosage: 60 MG, QD
     Route: 048
  2. SENNA S [Suspect]
     Active Substance: DOCUSATE SODIUM\SENNA LEAF
     Indication: Constipation
     Dosage: UNK

REACTIONS (17)
  - Cholecystitis [Unknown]
  - Blood thyroid stimulating hormone increased [Not Recovered/Not Resolved]
  - Myalgia [Not Recovered/Not Resolved]
  - Oral pain [Recovering/Resolving]
  - Fatigue [Recovering/Resolving]
  - Arthralgia [Not Recovered/Not Resolved]
  - Decreased appetite [Not Recovered/Not Resolved]
  - Dyspepsia [Unknown]
  - Stomatitis [Recovering/Resolving]
  - Taste disorder [Not Recovered/Not Resolved]
  - Constipation [Unknown]
  - Blood pressure increased [Unknown]
  - Genital rash [Unknown]
  - Blood pressure fluctuation [Unknown]
  - Muscle spasms [Unknown]
  - Nausea [Recovered/Resolved]
  - Diarrhoea [Unknown]
